FAERS Safety Report 7678661-3 (Version None)
Quarter: 2011Q3

REPORT INFORMATION
  Report Type: 
  Country: None (occurrence: None)
  Receive Date: 20110811
  Receipt Date: 20110803
  Transmission Date: 20111222
  Serious: Yes (Other)
  Sender: FDA-Public Use
  Company Number: US-US-EMD SERONO, INC.-7075233

PATIENT
  Sex: Female

DRUGS (1)
  1. REBIF [Suspect]
     Indication: PRODUCT USED FOR UNKNOWN INDICATION
     Route: 058
     Dates: start: 20110714

REACTIONS (5)
  - EAR INFECTION [None]
  - SINUSITIS [None]
  - NECK PAIN [None]
  - PARAESTHESIA [None]
  - MUSCULOSKELETAL PAIN [None]
